FAERS Safety Report 10196210 (Version 3)
Quarter: 2014Q3

REPORT INFORMATION
  Report Type: Spontaneous
  Country: AU (occurrence: None)
  Receive Date: 20140521
  Receipt Date: 20140728
  Transmission Date: 20150326
  Serious: Yes (Life-Threatening, Hospitalization, Other)
  Sender: FDA-Public Use
  Company Number: AUR-APL-2014-05921

PATIENT
  Sex: Male

DRUGS (3)
  1. METFORMIN [Suspect]
     Active Substance: METFORMIN HYDROCHLORIDE
     Indication: PRODUCT USED FOR UNKNOWN INDICATION
     Dosage: 1 D
     Route: 064
  2. QUETIAPINE [Suspect]
     Active Substance: QUETIAPINE
     Indication: PRODUCT USED FOR UNKNOWN INDICATION
     Dosage: 1D
     Route: 064
  3. MEGAFOL (FOLIC ACID) [Concomitant]

REACTIONS (6)
  - Foetal exposure during pregnancy [None]
  - Caesarean section [None]
  - Maternal drugs affecting foetus [None]
  - Foetal distress syndrome [None]
  - Neonatal respiratory distress syndrome [None]
  - Apgar score low [None]

NARRATIVE: CASE EVENT DATE: 20120628
